FAERS Safety Report 23724788 (Version 5)
Quarter: 2024Q4

REPORT INFORMATION
  Report Type: Report from Study
  Country: US (occurrence: US)
  Receive Date: 20240409
  Receipt Date: 20241014
  Transmission Date: 20250115
  Serious: Yes (Other)
  Sender: ABBVIE
  Company Number: US-ABBVIE-5710113

PATIENT
  Age: 73 Year
  Sex: Female

DRUGS (2)
  1. SKYRIZI [Suspect]
     Active Substance: RISANKIZUMAB-RZAA
     Indication: Crohn^s disease
     Route: 058
     Dates: start: 20231214
  2. SKYRIZI [Suspect]
     Active Substance: RISANKIZUMAB-RZAA
     Route: 058
     Dates: start: 20230727

REACTIONS (8)
  - Limb injury [Recovering/Resolving]
  - Oxygen saturation decreased [Unknown]
  - Rib fracture [Recovering/Resolving]
  - Dizziness [Unknown]
  - Fall [Recovering/Resolving]
  - Skin abrasion [Unknown]
  - Fall [Recovering/Resolving]
  - Fall [Recovered/Resolved]

NARRATIVE: CASE EVENT DATE: 20240730
